FAERS Safety Report 4883016-0 (Version None)
Quarter: 2006Q1

REPORT INFORMATION
  Report Type: 
  Country: None (occurrence: None)
  Receive Date: 20060118
  Receipt Date: 20060109
  Transmission Date: 20060701
  Serious: Yes (Hospitalization)
  Sender: FDA-Public Use
  Company Number: AU-ABBOTT-06P-008-0321754-00

PATIENT
  Sex: Male

DRUGS (4)
  1. AKINETON [Suspect]
     Indication: DRUG USE FOR UNKNOWN INDICATION
  2. TRIFLUOPERAZINE HYDROCHLORIDE [Suspect]
     Indication: DRUG USE FOR UNKNOWN INDICATION
     Route: 048
  3. LITHIUM [Suspect]
     Indication: DRUG USE FOR UNKNOWN INDICATION
  4. CLOZAPINE [Suspect]
     Indication: SCHIZOPHRENIA
     Route: 048
     Dates: start: 20050422, end: 20050601

REACTIONS (3)
  - BLOOD CREATINE PHOSPHOKINASE INCREASED [None]
  - LIVER FUNCTION TEST ABNORMAL [None]
  - NEUROLEPTIC MALIGNANT SYNDROME [None]
